FAERS Safety Report 5779591-4 (Version None)
Quarter: 2008Q2

REPORT INFORMATION
  Report Type: 
  Country: None (occurrence: None)
  Receive Date: 20080619
  Receipt Date: 20080604
  Transmission Date: 20081010
  Serious: Yes (Hospitalization, Other)
  Sender: FDA-Public Use
  Company Number: JP-PFIZER INC-2008043903

PATIENT
  Sex: Male

DRUGS (3)
  1. AMLODIPINE [Suspect]
     Indication: HYPERTENSION
     Dosage: DAILY DOSE:5MG-FREQ:QD
     Route: 048
     Dates: start: 20070929, end: 20071010
  2. TICLOPIDINE HCL [Concomitant]
     Dosage: DAILY DOSE:100MG
     Route: 048
  3. CELESTAMINE TAB [Concomitant]
     Dosage: FREQ:FREQUENCY: 3 DOSAGE FORMS/DAY
     Route: 048
     Dates: start: 20071010, end: 20071022

REACTIONS (2)
  - RASH GENERALISED [None]
  - RENAL IMPAIRMENT [None]
